FAERS Safety Report 6232535-3 (Version None)
Quarter: 2009Q2

REPORT INFORMATION
  Report Type: 
  Country: None (occurrence: None)
  Receive Date: 20090617
  Receipt Date: 20090605
  Transmission Date: 20091009
  Serious: Yes (Other)
  Sender: FDA-Public Use
  Company Number: FR-ELI_LILLY_AND_COMPANY-FR200906002643

PATIENT
  Sex: Female

DRUGS (2)
  1. OPTRUMA [Suspect]
     Dosage: UNK, UNKNOWN
     Route: 065
  2. FORTEO [Concomitant]
     Dosage: UNK, UNKNOWN
     Route: 065

REACTIONS (1)
  - OSTEONECROSIS [None]
